FAERS Safety Report 18665839 (Version 1)
Quarter: 2020Q4

REPORT INFORMATION
  Report Type: Spontaneous
  Country: GB (occurrence: GB)
  Receive Date: 20201226
  Receipt Date: 20201226
  Transmission Date: 20210114
  Serious: Yes (Other)
  Sender: FDA-Public Use
  Company Number: GB-TEVA-2020-GB-1860933

PATIENT
  Age: 27 Year
  Sex: Female
  Weight: 74 kg

DRUGS (1)
  1. TEVA UK LEVOTHYROXINE [Suspect]
     Active Substance: LEVOTHYROXINE
     Indication: HYPOTHYROIDISM
     Dosage: 100 MCG
     Route: 048
     Dates: start: 20201123, end: 20201129

REACTIONS (9)
  - Depression [Unknown]
  - Abnormal behaviour [Unknown]
  - Anger [Recovering/Resolving]
  - Mood swings [Recovering/Resolving]
  - Palpitations [Unknown]
  - Anxiety [Recovering/Resolving]
  - Tachyphrenia [Unknown]
  - Personality change [Unknown]
  - Product substitution issue [Unknown]

NARRATIVE: CASE EVENT DATE: 20201123
